FAERS Safety Report 9494941 (Version 3)
Quarter: 2013Q3

REPORT INFORMATION
  Report Type: Spontaneous
  Country: US (occurrence: US)
  Receive Date: 20130903
  Receipt Date: 20130918
  Transmission Date: 20140515
  Serious: Yes (Hospitalization)
  Sender: FDA-Public Use
  Company Number: US-BAXTER-2013BAX031856

PATIENT
  Age: 62 Year
  Sex: Female

DRUGS (9)
  1. DIANEAL PD2 [Suspect]
     Indication: PERITONEAL DIALYSIS
     Route: 033
  2. DIANEAL PD2 [Suspect]
     Indication: PERITONEAL DIALYSIS
     Route: 033
  3. DIANEAL PD2 (ULTRABAG) [Suspect]
     Indication: PERITONEAL DIALYSIS
     Route: 033
  4. DIANEAL PD2 (ULTRABAG) [Suspect]
     Indication: PERITONEAL DIALYSIS
     Route: 033
  5. NIFEDIPINE [Suspect]
     Indication: HYPERTENSION
     Route: 048
  6. METOPROLOL [Suspect]
     Indication: HYPERTENSION
     Route: 048
  7. METOPROLOL [Suspect]
     Route: 048
  8. COZAAR [Suspect]
     Indication: HYPERTENSION
     Route: 048
  9. COZAAR [Suspect]
     Route: 048

REACTIONS (2)
  - Heart rate increased [Not Recovered/Not Resolved]
  - Hypotension [Recovered/Resolved]
